FAERS Safety Report 17810620 (Version 1)
Quarter: 2020Q2

REPORT INFORMATION
  Report Type: Spontaneous
  Country: DE (occurrence: DE)
  Receive Date: 20200521
  Receipt Date: 20200521
  Transmission Date: 20200714
  Serious: Yes (Hospitalization)
  Sender: FDA-Public Use
  Company Number: NVSC2020DE136403

PATIENT
  Age: 18 Month
  Sex: Male
  Weight: 12 kg

DRUGS (2)
  1. PREDNISOLONE. [Suspect]
     Active Substance: PREDNISOLONE
     Indication: OBSTRUCTIVE AIRWAYS DISORDER
     Dosage: 100 MG, QD
     Route: 054
     Dates: start: 20190221, end: 20190222
  2. SALBUTAMOL [Concomitant]
     Active Substance: ALBUTEROL
     Indication: OBSTRUCTIVE AIRWAYS DISORDER
     Dosage: 2 DF, QD
     Route: 055
     Dates: start: 20190222, end: 20190222

REACTIONS (3)
  - Pyrexia [Recovered/Resolved]
  - Pneumonia [Recovered/Resolved]
  - Cough [Recovered/Resolved]

NARRATIVE: CASE EVENT DATE: 20190221
